FAERS Safety Report 23595513 (Version 1)
Quarter: 2024Q1

REPORT INFORMATION
  Report Type: Spontaneous
  Country: TR (occurrence: TR)
  Receive Date: 20240305
  Receipt Date: 20240305
  Transmission Date: 20240410
  Serious: Yes (Other)
  Sender: FDA-Public Use
  Company Number: TR-CELLTRION INC.-2024TR004999

PATIENT

DRUGS (2)
  1. TRUXIMA [Suspect]
     Active Substance: RITUXIMAB-ABBS
     Indication: Marginal zone lymphoma
     Dosage: 1/WEEK
     Route: 050
  2. TRUXIMA [Suspect]
     Active Substance: RITUXIMAB-ABBS
     Dosage: 1/WEEK
     Route: 050

REACTIONS (3)
  - Anaphylactic reaction [Recovering/Resolving]
  - Immune tolerance induction [Recovering/Resolving]
  - Intentional product use issue [Unknown]
